FAERS Safety Report 4433343-6 (Version None)
Quarter: 2004Q3

REPORT INFORMATION
  Report Type: 
  Country: None (occurrence: None)
  Receive Date: 20040824
  Receipt Date: 20040812
  Transmission Date: 20050211
  Serious: Yes (Life-Threatening, Hospitalization)
  Sender: FDA-Public Use
  Company Number: SUS1-2004-00422

PATIENT
  Age: 65 Year
  Sex: Male

DRUGS (1)
  1. CARBATROL [Suspect]
     Dosage: 300 MG,

REACTIONS (2)
  - DRUG HYPERSENSITIVITY [None]
  - SPLENOMEGALY [None]
